FAERS Safety Report 5074019-4 (Version None)
Quarter: 2006Q3

REPORT INFORMATION
  Report Type: 
  Country: None (occurrence: None)
  Receive Date: 20060808
  Receipt Date: 20060321
  Transmission Date: 20061208
  Serious: No
  Sender: FDA-Public Use
  Company Number: US-AMGEN-US173198

PATIENT
  Sex: Male

DRUGS (13)
  1. EPOGEN [Suspect]
     Indication: DIALYSIS
     Dates: start: 20050501, end: 20060310
  2. RENAGEL [Concomitant]
  3. LEVOXYL [Concomitant]
  4. ZOLOFT [Concomitant]
  5. NEPHRO-VITE [Concomitant]
  6. FOLIC ACID [Concomitant]
  7. DEPAKOTE [Concomitant]
  8. LIPITOR [Concomitant]
  9. IBUPROFEN [Concomitant]
  10. STARLIX [Concomitant]
  11. TUMS [Concomitant]
  12. PHOSLO [Concomitant]
  13. SEROQUEL [Concomitant]

REACTIONS (1)
  - THERAPEUTIC RESPONSE DECREASED [None]
